FAERS Safety Report 17195272 (Version 1)
Quarter: 2019Q4

REPORT INFORMATION
  Report Type: Spontaneous
  Country: US (occurrence: US)
  Receive Date: 20191202
  Receipt Date: 20191202
  Transmission Date: 20200122
  Serious: Yes (Hospitalization)
  Sender: FDA-Public Use
  Company Number: None

PATIENT
  Age: 55 Year
  Sex: Female

DRUGS (21)
  1. AMLODIPINE [Concomitant]
     Active Substance: AMLODIPINE BESYLATE
  2. ELIDEL [Concomitant]
     Active Substance: PIMECROLIMUS
  3. CETIRIZINE [Concomitant]
     Active Substance: CETIRIZINE HYDROCHLORIDE
  4. METFORMIN [Concomitant]
     Active Substance: METFORMIN HYDROCHLORIDE
  5. SILVER SULFA [Concomitant]
  6. XARELTO [Concomitant]
     Active Substance: RIVAROXABAN
  7. CARVEDILOL. [Concomitant]
     Active Substance: CARVEDILOL
  8. TIKOSYN [Concomitant]
     Active Substance: DOFETILIDE
  9. LEVOTHYROXIN [Concomitant]
     Active Substance: LEVOTHYROXINE
  10. TRULICITY [Concomitant]
     Active Substance: DULAGLUTIDE
  11. ENBREL [Suspect]
     Active Substance: ETANERCEPT
     Indication: PSORIATIC ARTHROPATHY
     Dosage: ?          OTHER FREQUENCY:QWK ;?
     Route: 058
     Dates: start: 20160217
  12. DILTIAZEM. [Concomitant]
     Active Substance: DILTIAZEM
  13. IRBESARTAN. [Concomitant]
     Active Substance: IRBESARTAN
  14. PANTOPRAZOLE [Concomitant]
     Active Substance: PANTOPRAZOLE
  15. LEVOCETIRIZI [Concomitant]
  16. SYNTHROID [Concomitant]
     Active Substance: LEVOTHYROXINE SODIUM
  17. TORSEMIDE. [Concomitant]
     Active Substance: TORSEMIDE
  18. AMIODARONE [Concomitant]
     Active Substance: AMIODARONE
  19. FLUTICASONE. [Concomitant]
     Active Substance: FLUTICASONE
  20. SPIRONOLACT [Concomitant]
     Active Substance: SPIRONOLACTONE
  21. TRAMADOL HCL [Concomitant]
     Active Substance: TRAMADOL HYDROCHLORIDE

REACTIONS (2)
  - Therapy cessation [None]
  - Surgery [None]

NARRATIVE: CASE EVENT DATE: 20190819
